FAERS Safety Report 7636292 (Version 5)
Quarter: 2013Q1

REPORT INFORMATION
  Report Type: Spontaneous
  Country: US (occurrence: US)
  Receive Date: 20101021
  Receipt Date: 20130221
  Transmission Date: 20140127
  Serious: Yes (Hospitalization, Other)
  Sender: FDA-Public Use
  Company Number: US-JNJFOC-20100806498

PATIENT
  Sex: Female
  Weight: 100.7 kg

DRUGS (2)
  1. LEVAQUIN [Suspect]
     Indication: NASOPHARYNGITIS
     Route: 048
     Dates: start: 2008, end: 2008
  2. LEVAQUIN [Suspect]
     Indication: NASOPHARYNGITIS
     Route: 048

REACTIONS (3)
  - Tendon rupture [Recovering/Resolving]
  - Depression [Unknown]
  - Fall [Unknown]
